FAERS Safety Report 25125220 (Version 1)
Quarter: 2025Q1

REPORT INFORMATION
  Report Type: Report from Study
  Country: US (occurrence: US)
  Receive Date: 20250326
  Receipt Date: 20250326
  Transmission Date: 20250409
  Serious: Yes (Other)
  Sender: Pyros Pharmaceuticals
  Company Number: US-PYROS PHARMACEUTICALS, INC-2024-PYROSUS000045

PATIENT
  Sex: Male
  Weight: 26.3 kg

DRUGS (21)
  1. VIGPODER [Suspect]
     Active Substance: VIGABATRIN
     Indication: Infantile spasms
     Dates: start: 20240725, end: 202408
  2. VIGPODER [Suspect]
     Active Substance: VIGABATRIN
     Route: 048
     Dates: start: 20240802, end: 202408
  3. VIGPODER [Suspect]
     Active Substance: VIGABATRIN
     Dates: start: 202408, end: 20240917
  4. VIGPODER [Suspect]
     Active Substance: VIGABATRIN
     Dates: start: 20241002, end: 20241006
  5. VIGPODER [Suspect]
     Active Substance: VIGABATRIN
     Dates: start: 20241007
  6. VIGPODER [Suspect]
     Active Substance: VIGABATRIN
     Dates: start: 20250209
  7. VIGAFYDE [Suspect]
     Active Substance: VIGABATRIN
     Indication: Infantile spasms
     Dates: start: 20240918, end: 20241002
  8. VIGAFYDE [Suspect]
     Active Substance: VIGABATRIN
     Dates: start: 20250106
  9. VIGAFYDE [Suspect]
     Active Substance: VIGABATRIN
     Dates: start: 20250106
  10. BACLOFEN [Concomitant]
     Active Substance: BACLOFEN
     Indication: Product used for unknown indication
     Route: 065
  11. KLONOPIN [Concomitant]
     Active Substance: CLONAZEPAM
     Indication: Product used for unknown indication
     Route: 065
  12. VITAMIN B6 [Concomitant]
     Active Substance: PYRIDOXINE HYDROCHLORIDE
     Indication: Product used for unknown indication
     Route: 065
  13. KEPPRA [Concomitant]
     Active Substance: LEVETIRACETAM
     Indication: Product used for unknown indication
     Route: 065
  14. TRILEPTAL [Concomitant]
     Active Substance: OXCARBAZEPINE
     Indication: Product used for unknown indication
     Route: 065
  15. ONFI [Concomitant]
     Active Substance: CLOBAZAM
     Indication: Product used for unknown indication
     Route: 065
  16. ZONISAMIDE [Concomitant]
     Active Substance: ZONISAMIDE
     Indication: Product used for unknown indication
     Route: 065
  17. Melatonin with magnesium [Concomitant]
     Indication: Product used for unknown indication
     Route: 065
  18. IRON [Concomitant]
     Active Substance: IRON
     Indication: Product used for unknown indication
     Route: 065
  19. CALCIUM\VITAMIN D [Concomitant]
     Active Substance: CALCIUM\VITAMIN D
     Indication: Product used for unknown indication
     Route: 065
  20. VITAMIN D [Concomitant]
     Active Substance: VITAMIN D NOS
     Indication: Product used for unknown indication
     Route: 065
  21. VITAMIN D [Concomitant]
     Active Substance: VITAMIN D NOS
     Indication: Hypersensitivity

REACTIONS (10)
  - Lennox-Gastaut syndrome [Not Recovered/Not Resolved]
  - Tonic convulsion [Not Recovered/Not Resolved]
  - Seizure [Recovered/Resolved]
  - Hypersensitivity [Not Recovered/Not Resolved]
  - Influenza [Not Recovered/Not Resolved]
  - Pyrexia [Recovered/Resolved]
  - Rash [Recovering/Resolving]
  - Somnolence [Recovering/Resolving]
  - Prescribed overdose [Unknown]
  - Drug ineffective [Unknown]

NARRATIVE: CASE EVENT DATE: 20240101
